FAERS Safety Report 10366888 (Version 1)
Quarter: 2014Q3

REPORT INFORMATION
  Report Type: Report from Study
  Country: US (occurrence: US)
  Receive Date: 20140807
  Receipt Date: 20140807
  Transmission Date: 20150326
  Serious: Yes (Other)
  Sender: FDA-Public Use
  Company Number: US-UCBSA-2014007683

PATIENT
  Age: 36 Year
  Sex: Female
  Weight: 68.1 kg

DRUGS (15)
  1. FLAXSEED [Concomitant]
     Active Substance: FLAX SEED
     Dosage: 1400 MG, ONCE DAILY (QD)
     Route: 048
     Dates: start: 20140420, end: 20140627
  2. PRENATAL VITAMINS [Concomitant]
     Active Substance: VITAMINS
     Dosage: UNK
     Route: 048
     Dates: start: 20140528, end: 20140710
  3. CITRUS BIOFLAVONID [Concomitant]
     Dosage: 1 DF, ONCE DAILY (QD)
     Route: 048
     Dates: start: 20140420, end: 20140710
  4. MELOXICAM. [Concomitant]
     Active Substance: MELOXICAM
     Indication: RHEUMATOID ARTHRITIS
     Dosage: UNK
     Dates: start: 20140420, end: 20140606
  5. MELOXICAM. [Concomitant]
     Active Substance: MELOXICAM
     Indication: OROPHARYNGEAL PAIN
  6. CITRACAL [Concomitant]
     Active Substance: CALCIUM CITRATE
     Dosage: 630 MG, ONCE DAILY (QD)
     Route: 048
     Dates: start: 20140420, end: 20140710
  7. VITAMIN D [Concomitant]
     Active Substance: CHOLECALCIFEROL
     Dosage: 1500 IU, UNK
     Route: 048
     Dates: start: 20140420, end: 20140710
  8. DHA [Concomitant]
     Dosage: 200 MG, ONCE DAILY (QD)
     Route: 048
     Dates: start: 20140528, end: 20140710
  9. ACETAMINOPHEN. [Concomitant]
     Active Substance: ACETAMINOPHEN
     Indication: HEADACHE
     Dosage: 650 MG, ONCE DAILY (QD)
     Route: 048
     Dates: start: 20140703, end: 20140703
  10. CERTOLIZUMAB PEGOL RA [Suspect]
     Active Substance: CERTOLIZUMAB PEGOL
     Indication: RHEUMATOID ARTHRITIS
     Dosage: 200 MG,
     Dates: start: 20140415, end: 20140701
  11. FLAXSEED [Concomitant]
     Active Substance: FLAX SEED
     Dosage: 1000 MG, ONCE DAILY (QD)
     Route: 048
     Dates: start: 20140528, end: 20140710
  12. CAFFEINE. [Concomitant]
     Active Substance: CAFFEINE
     Dosage: 1 SERV 3.5 WEEK
     Dates: start: 20140420, end: 20140528
  13. PROBIOTICS NOS [Concomitant]
     Active Substance: PROBIOTICS NOS
     Indication: PROBIOTIC THERAPY
     Dosage: 1 DF, ONCE DAILY (QD)
     Route: 048
     Dates: start: 20140420, end: 20140710
  14. RHINOCORT [Concomitant]
     Active Substance: BUDESONIDE
     Dosage: 32 ?G, ONCE DAILY (QD)
     Dates: start: 20140420, end: 20140606
  15. VITAMIN C [Concomitant]
     Active Substance: ASCORBIC ACID
     Dosage: 1000 MG, ONCE DAILY (QD)
     Dates: start: 20140420, end: 20140603

REACTIONS (2)
  - Abortion spontaneous [Unknown]
  - Pregnancy [Unknown]

NARRATIVE: CASE EVENT DATE: 2014
